FAERS Safety Report 7564372-1 (Version None)
Quarter: 2011Q2

REPORT INFORMATION
  Report Type: 
  Country: None (occurrence: None)
  Receive Date: 20110622
  Receipt Date: 20110609
  Transmission Date: 20111010
  Serious: Yes (Other)
  Sender: FDA-Public Use
  Company Number: PHHY2011JP31367

PATIENT
  Sex: Male

DRUGS (9)
  1. TASIGNA [Suspect]
     Dosage: 600 MG, DAILY
     Route: 048
     Dates: start: 20110125, end: 20110221
  2. ASPIRIN [Concomitant]
     Dosage: 100 MG, UNK
     Route: 048
  3. AMARYL [Concomitant]
     Dosage: 3 MG, UNK
     Route: 048
  4. CANDESARTAN CILEXETIL [Concomitant]
     Dosage: 4 MG, UNK
     Route: 048
  5. TASIGNA [Suspect]
     Indication: CHRONIC MYELOID LEUKAEMIA
     Dosage: 400 MG, DAILY
     Route: 048
     Dates: start: 20101228, end: 20110124
  6. VERAPAMIL HCL [Concomitant]
     Dosage: 120 MG, UNK
     Route: 048
  7. NORVASC [Concomitant]
     Dosage: 2.5 MG, UNK
  8. BASEN [Concomitant]
     Dosage: 0.9 MG, UNK
     Route: 048
  9. LASIX [Concomitant]
     Dosage: 60 MG, UNK
     Route: 048

REACTIONS (1)
  - DIABETES MELLITUS [None]
